FAERS Safety Report 11647266 (Version 1)
Quarter: 2015Q4

REPORT INFORMATION
  Report Type: Spontaneous
  Country: US (occurrence: US)
  Receive Date: 20151021
  Receipt Date: 20151021
  Transmission Date: 20160304
  Serious: No
  Sender: FDA-Public Use
  Company Number: US-009507513-1510USA000612

PATIENT
  Age: 22 Year
  Sex: Female
  Weight: 106.58 kg

DRUGS (1)
  1. NEXPLANON [Suspect]
     Active Substance: ETONOGESTREL
     Indication: CONTRACEPTION
     Dosage: EVERY 3 YEARS, LEFT ARM
     Route: 059
     Dates: start: 20150317

REACTIONS (2)
  - Menometrorrhagia [Unknown]
  - Haemorrhage [Unknown]

NARRATIVE: CASE EVENT DATE: 20150317
